FAERS Safety Report 17259383 (Version 7)
Quarter: 2020Q2

REPORT INFORMATION
  Report Type: Spontaneous
  Country: US (occurrence: US)
  Receive Date: 20200110
  Receipt Date: 20200430
  Transmission Date: 20200713
  Serious: No
  Sender: FDA-Public Use
  Company Number: US-SA-2020SA004668

PATIENT
  Age: 72 Year
  Sex: Male
  Weight: 96 kg

DRUGS (1)
  1. LANTUS SOLOSTAR [Suspect]
     Active Substance: INSULIN GLARGINE
     Indication: TYPE 2 DIABETES MELLITUS
     Dosage: 40 IU, QD
     Route: 065
     Dates: start: 20191221

REACTIONS (5)
  - Injection site pain [Recovered/Resolved]
  - Needle issue [Recovered/Resolved]
  - Blood glucose abnormal [Unknown]
  - Therapeutic product effect incomplete [Unknown]
  - Device operational issue [Recovered/Resolved]

NARRATIVE: CASE EVENT DATE: 20191221
